FAERS Safety Report 21309617 (Version 2)
Quarter: 2022Q3

REPORT INFORMATION
  Report Type: Spontaneous
  Country: CN (occurrence: CN)
  Receive Date: 20220908
  Receipt Date: 20220919
  Transmission Date: 20221027
  Serious: Yes (Death, Other)
  Sender: FDA-Public Use
  Company Number: CN-SANOFI-01262279

PATIENT
  Age: 82 Year
  Sex: Male

DRUGS (2)
  1. PLAVIX [Suspect]
     Active Substance: CLOPIDOGREL BISULFATE
     Indication: Acute coronary syndrome
     Dosage: 1 DF, QD
     Route: 048
     Dates: start: 2013
  2. ASPIRIN [Suspect]
     Active Substance: ASPIRIN
     Dosage: 3 DF, 1X
     Route: 048

REACTIONS (9)
  - Acute coronary syndrome [Fatal]
  - Arteriosclerosis [Fatal]
  - Left ventricular failure [Fatal]
  - Cardiac dysfunction [Fatal]
  - Cardiogenic shock [Fatal]
  - Chest discomfort [Unknown]
  - Cough [Unknown]
  - Haemoptysis [Unknown]
  - Wrong technique in product usage process [Unknown]

NARRATIVE: CASE EVENT DATE: 20220101
